FAERS Safety Report 20741283 (Version 4)
Quarter: 2025Q1

REPORT INFORMATION
  Report Type: Spontaneous
  Country: US (occurrence: US)
  Receive Date: 20220422
  Receipt Date: 20250224
  Transmission Date: 20250409
  Serious: Yes (Other)
  Sender: PFIZER
  Company Number: US-PFIZER INC-202200557695

PATIENT
  Age: 66 Year
  Sex: Male

DRUGS (11)
  1. XELJANZ XR [Suspect]
     Active Substance: TOFACITINIB CITRATE
     Dosage: 11 MG, DAILY (1 TABLET BY MOUTH DAILY )
     Route: 048
  2. VITAMIN B12 [Concomitant]
     Active Substance: CYANOCOBALAMIN
  3. DOXAZOSIN [Concomitant]
     Active Substance: DOXAZOSIN MESYLATE
  4. FAMOTIDINE [Concomitant]
     Active Substance: FAMOTIDINE
  5. LISINOPRIL [Concomitant]
     Active Substance: LISINOPRIL
  6. OXYBUTYNIN [Concomitant]
     Active Substance: OXYBUTYNIN
  7. PREDNISONE [Concomitant]
     Active Substance: PREDNISONE
  8. SIMVASTATIN [Concomitant]
     Active Substance: SIMVASTATIN
  9. ZINC [Concomitant]
     Active Substance: ZINC
  10. METHOTREXATE SODIUM [Concomitant]
     Active Substance: METHOTREXATE SODIUM
  11. AMLODIPINE BESYLATE [Concomitant]
     Active Substance: AMLODIPINE BESYLATE
     Indication: Hypertension

REACTIONS (5)
  - Bladder cancer [Not Recovered/Not Resolved]
  - Neoplasm malignant [Not Recovered/Not Resolved]
  - Therapeutic response unexpected [Unknown]
  - Arthritis [Unknown]
  - Hyperchlorhydria [Unknown]
